FAERS Safety Report 9260717 (Version 1)
Quarter: 2013Q2

REPORT INFORMATION
  Report Type: Spontaneous
  Country: JP (occurrence: JP)
  Receive Date: 20130429
  Receipt Date: 20130429
  Transmission Date: 20140414
  Serious: Yes (Other)
  Sender: FDA-Public Use
  Company Number: JP-PFIZER INC-2013131837

PATIENT
  Sex: Male

DRUGS (1)
  1. LYRICA [Suspect]
     Dosage: 50 MG, 1X/DAY
     Route: 048
     Dates: start: 201301

REACTIONS (8)
  - Deafness bilateral [Unknown]
  - Hyperacusis [Unknown]
  - Ear discomfort [Unknown]
  - Back pain [Unknown]
  - Dizziness [Unknown]
  - Somnolence [Unknown]
  - Muscular weakness [Unknown]
  - Weight increased [Unknown]
